FAERS Safety Report 12418682 (Version 1)
Quarter: 2016Q2

REPORT INFORMATION
  Report Type: Spontaneous
  Country: US (occurrence: None)
  Receive Date: 20160527
  Receipt Date: 20160527
  Transmission Date: 20160815
  Serious: No
  Sender: FDA-Public Use
  Company Number: None

PATIENT
  Age: 64 Year
  Sex: Female

DRUGS (1)
  1. HARVONI [Suspect]
     Active Substance: LEDIPASVIR\SOFOSBUVIR
     Indication: HEPATITIS C
     Route: 048
     Dates: start: 20160518

REACTIONS (12)
  - Headache [None]
  - Stress [None]
  - Abdominal distension [None]
  - Dyspepsia [None]
  - Pruritus [None]
  - Irritability [None]
  - Chest discomfort [None]
  - Constipation [None]
  - Nausea [None]
  - Dyspnoea exertional [None]
  - Crying [None]
  - Dyspnoea [None]

NARRATIVE: CASE EVENT DATE: 20160518
